FAERS Safety Report 21550093 (Version 1)
Quarter: 2022Q4

REPORT INFORMATION
  Report Type: Report from Study
  Country: US (occurrence: US)
  Receive Date: 20221103
  Receipt Date: 20221103
  Transmission Date: 20230113
  Serious: Yes (Other)
  Sender: FDA-Public Use
  Company Number: US-BRISTOL-MYERS SQUIBB COMPANY-2022-129350

PATIENT
  Age: 82 Year
  Sex: Female
  Weight: 53.070 kg

DRUGS (30)
  1. POMALYST [Suspect]
     Active Substance: POMALIDOMIDE
     Indication: Plasma cell myeloma
     Route: 048
  2. MILK OF MAGNESIA [Suspect]
     Active Substance: MAGNESIUM HYDROXIDE
     Indication: Constipation
     Route: 065
  3. ACIDOPHILUS [Concomitant]
     Active Substance: LACTOBACILLUS ACIDOPHILUS
  4. WOMEN^S DAILY MULTIVITAMIN [Concomitant]
  5. TEMAZEPAM [Concomitant]
     Active Substance: TEMAZEPAM
  6. LEVOTHYROXINE [Concomitant]
     Active Substance: LEVOTHYROXINE
  7. ELIQUIS [Concomitant]
     Active Substance: APIXABAN
  8. CARVEDILOL [Concomitant]
     Active Substance: CARVEDILOL
  9. SPIRONOLACTONE [Concomitant]
     Active Substance: SPIRONOLACTONE
  10. FUROSEMIDE [Concomitant]
     Active Substance: FUROSEMIDE
  11. ROSUVASTATIN [Concomitant]
     Active Substance: ROSUVASTATIN
  12. CALCIUM [Concomitant]
     Active Substance: CALCIUM
  13. LISINOPRIL [Concomitant]
     Active Substance: LISINOPRIL
  14. TRADJENTA [Concomitant]
     Active Substance: LINAGLIPTIN
  15. TRELEGY ELLIPTA [Concomitant]
     Active Substance: FLUTICASONE FUROATE\UMECLIDINIUM BROMIDE\VILANTEROL TRIFENATATE
  16. LANTUS [Concomitant]
     Active Substance: INSULIN GLARGINE
  17. NOVOLOG [Concomitant]
     Active Substance: INSULIN ASPART
  18. METHENAMINE HIPPURATE [Concomitant]
     Active Substance: METHENAMINE HIPPURATE
  19. RETINOL [Concomitant]
     Active Substance: RETINOL
  20. OMEGA-3 FATTY ACIDS [Concomitant]
     Active Substance: OMEGA-3 FATTY ACIDS
  21. SELENIUM [Concomitant]
     Active Substance: SELENIUM
  22. LUTEIN [Concomitant]
     Active Substance: LUTEIN
  23. ZINC [Concomitant]
     Active Substance: ZINC
  24. COENZYME Q10 [Concomitant]
     Active Substance: DIETARY SUPPLEMENT\UBIDECARENONE
  25. KRILL OIL 3 [Concomitant]
  26. VITAMINS [Concomitant]
     Active Substance: VITAMINS
  27. CRANBERRY [Concomitant]
     Active Substance: CRANBERRY
  28. MAGNESIUM [Concomitant]
     Active Substance: MAGNESIUM
  29. VITAMIN D3 [Concomitant]
     Active Substance: CHOLECALCIFEROL
  30. VITAMIN B COMPLEX - VITAMIN C [Concomitant]

REACTIONS (3)
  - Diarrhoea [Unknown]
  - Dysuria [Unknown]
  - Constipation [Unknown]
